FAERS Safety Report 19834979 (Version 1)
Quarter: 2021Q3

REPORT INFORMATION
  Report Type: Spontaneous
  Country: US (occurrence: US)
  Receive Date: 20210915
  Receipt Date: 20210915
  Transmission Date: 20211014
  Serious: No
  Sender: FDA-Public Use
  Company Number: US-KYOWAKIRIN-2021BKK015313

PATIENT

DRUGS (1)
  1. POTELIGEO [Suspect]
     Active Substance: MOGAMULIZUMAB-KPKC
     Indication: PRODUCT USED FOR UNKNOWN INDICATION
     Dosage: STANDARD DOSING
     Route: 065
     Dates: start: 2021, end: 2021

REACTIONS (2)
  - Rash [Unknown]
  - Drug eruption [Unknown]

NARRATIVE: CASE EVENT DATE: 2021
